FAERS Safety Report 4421447-3 (Version None)
Quarter: 2004Q3

REPORT INFORMATION
  Report Type: 
  Country: None (occurrence: None)
  Receive Date: 20040709
  Receipt Date: 20040527
  Transmission Date: 20050211
  Serious: No
  Sender: FDA-Public Use
  Company Number: 2004S1000116

PATIENT
  Age: 52 Year
  Sex: Female
  Weight: 94.7 kg

DRUGS (1)
  1. CUBICIN [Suspect]
     Indication: OSTEOMYELITIS
     Dosage: 500 MG; Q24H; IV
     Route: 042
     Dates: start: 20040506, end: 20040601

REACTIONS (1)
  - EOSINOPHILIA [None]
